FAERS Safety Report 12846943 (Version 3)
Quarter: 2016Q4

REPORT INFORMATION
  Report Type: Report from Study
  Country: BR (occurrence: BR)
  Receive Date: 20161014
  Receipt Date: 20161201
  Transmission Date: 20170207
  Serious: Yes (Other)
  Sender: FDA-Public Use
  Company Number: PHHY2016BR139645

PATIENT
  Age: 73 Year
  Sex: Male
  Weight: 74 kg

DRUGS (2)
  1. SANDOSTATIN LAR DEPOT [Suspect]
     Active Substance: OCTREOTIDE ACETATE
     Indication: PANCREATIC NEUROENDOCRINE TUMOUR
     Dosage: 30 MG, QMO (1 VIAL PER MONTH)
     Route: 030
     Dates: start: 20160516
  2. METFORMIN [Concomitant]
     Active Substance: METFORMIN HYDROCHLORIDE
     Indication: DIABETES MELLITUS
     Dosage: UNK
     Dates: start: 201504

REACTIONS (2)
  - Metastases to liver [Unknown]
  - Metastases to pelvis [Unknown]

NARRATIVE: CASE EVENT DATE: 20160915
